FAERS Safety Report 18013402 (Version 7)
Quarter: 2021Q4

REPORT INFORMATION
  Report Type: Spontaneous
  Country: JP (occurrence: JP)
  Receive Date: 20200713
  Receipt Date: 20211223
  Transmission Date: 20220303
  Serious: Yes (Hospitalization)
  Sender: FDA-Public Use
  Company Number: JP-KYOWAKIRIN-2020AKK011269

PATIENT
  Age: 50 Year
  Sex: Male

DRUGS (6)
  1. ROMIPLOSTIM [Suspect]
     Active Substance: ROMIPLOSTIM
     Indication: Immune thrombocytopenia
     Dosage: 280 MICROGRAM
     Route: 058
  2. ROMIPLOSTIM [Suspect]
     Active Substance: ROMIPLOSTIM
     Dosage: 250 MICROGRAM, DOSING INTERVAL EXTENSION TO TEN DAYS
     Route: 058
  3. ROMIPLOSTIM [Suspect]
     Active Substance: ROMIPLOSTIM
     Dosage: 250 MICROGRAM, WEEKLY ADMINISTRATION
     Route: 058
     Dates: end: 20200814
  4. ROMIPLOSTIM [Suspect]
     Active Substance: ROMIPLOSTIM
     Dosage: 200 MICROGRAM, WEEKLY ADMINISTRATION (TAPERING)
     Route: 058
     Dates: end: 20200825
  5. ROMIPLOSTIM [Suspect]
     Active Substance: ROMIPLOSTIM
     Dosage: 110-120 MICROGRAM, QWK
     Route: 058
  6. RITUXAN [Concomitant]
     Active Substance: RITUXIMAB
     Indication: Immune thrombocytopenia
     Dosage: UNK
     Route: 041
     Dates: start: 20200908

REACTIONS (5)
  - Platelet count decreased [Recovered/Resolved]
  - Off label use [Recovered/Resolved]
  - Platelet count increased [Recovered/Resolved]
  - Abdominal pain [Not Recovered/Not Resolved]
  - Off label use [Recovered/Resolved]

NARRATIVE: CASE EVENT DATE: 20200626
